FAERS Safety Report 4395091-0 (Version None)
Quarter: 2004Q3

REPORT INFORMATION
  Report Type: 
  Country: None (occurrence: None)
  Receive Date: 20040707
  Receipt Date: 20040629
  Transmission Date: 20050211
  Serious: Yes (Hospitalization)
  Sender: FDA-Public Use
  Company Number: 200411769GDS

PATIENT
  Age: 68 Year
  Sex: Male
  Weight: 66.8 kg

DRUGS (2)
  1. ASPIRIN [Suspect]
     Dosage: 100 MG, TOTAL DAILY, ORAL
     Route: 048
     Dates: end: 20030413
  2. HEPARIN [Suspect]
     Dates: start: 20030414, end: 20030505

REACTIONS (10)
  - ANGINA PECTORIS [None]
  - BACK PAIN [None]
  - CARDIAC MURMUR [None]
  - GASTRIC ULCER [None]
  - GASTROINTESTINAL INJURY [None]
  - LACERATION [None]
  - ODYNOPHAGIA [None]
  - OESOPHAGEAL HAEMORRHAGE [None]
  - RESUSCITATION [None]
  - VENTRICULAR FIBRILLATION [None]
